FAERS Safety Report 25003298 (Version 1)
Quarter: 2025Q1

REPORT INFORMATION
  Report Type: Spontaneous
  Country: US (occurrence: US)
  Receive Date: 20250224
  Receipt Date: 20250224
  Transmission Date: 20250409
  Serious: Yes (Hospitalization, Other)
  Sender: AMGEN
  Company Number: US-AMGEN-USASP2025032367

PATIENT
  Age: 64 Year
  Sex: Female

DRUGS (1)
  1. PROLIA [Suspect]
     Active Substance: DENOSUMAB
     Indication: Product used for unknown indication
     Dosage: 60 MILLIGRAM, Q6MO
     Route: 065

REACTIONS (19)
  - Pneumonia [Recovering/Resolving]
  - Sinusitis [Recovering/Resolving]
  - Bronchitis [Recovering/Resolving]
  - Tuberculosis [Unknown]
  - Lymphocyte count decreased [Recovering/Resolving]
  - Neutrophil count increased [Recovering/Resolving]
  - T-lymphocyte count decreased [Recovering/Resolving]
  - CD4 lymphocytes decreased [Recovering/Resolving]
  - CD8 lymphocytes decreased [Recovering/Resolving]
  - Blood glucose increased [Recovering/Resolving]
  - Blood creatinine increased [Recovering/Resolving]
  - Blood alkaline phosphatase increased [Recovering/Resolving]
  - Glomerular filtration rate decreased [Recovering/Resolving]
  - Total complement activity decreased [Recovering/Resolving]
  - Blood immunoglobulin G decreased [Recovering/Resolving]
  - Blood immunoglobulin A increased [Recovering/Resolving]
  - Blood immunoglobulin M decreased [Recovering/Resolving]
  - Asthma [Recovering/Resolving]
  - Chronic obstructive pulmonary disease [Recovering/Resolving]

NARRATIVE: CASE EVENT DATE: 20250129
